FAERS Safety Report 9391958 (Version 3)
Quarter: 2013Q3

REPORT INFORMATION
  Report Type: Report from Study
  Country: DE (occurrence: DE)
  Receive Date: 20130709
  Receipt Date: 20130926
  Transmission Date: 20140515
  Serious: Yes (Hospitalization)
  Sender: FDA-Public Use
  Company Number: DE-VERTEX PHARMACEUTICALS INC-2013-007808

PATIENT
  Age: 43 Year
  Sex: Male
  Weight: 66 kg

DRUGS (3)
  1. VX-950 (TELAPREVIR) [Suspect]
     Indication: HEPATITIS C
     Dosage: 2250 MG, TABLET
     Route: 048
     Dates: start: 20120721, end: 20121013
  2. PEGASYS [Suspect]
     Indication: HEPATITIS C
     Dosage: 180 ?G, UNK
     Route: 058
     Dates: start: 20120721, end: 20130617
  3. COPEGUS [Suspect]
     Indication: HEPATITIS C
     Dosage: 1200 MG, UNK
     Route: 048
     Dates: start: 20120721, end: 20130617

REACTIONS (3)
  - Subcutaneous abscess [Recovered/Resolved]
  - Rotavirus infection [Recovered/Resolved]
  - Diarrhoea [Recovered/Resolved]
